FAERS Safety Report 11064583 (Version 1)
Quarter: 2015Q2

REPORT INFORMATION
  Report Type: Spontaneous
  Country: DE (occurrence: DE)
  Receive Date: 20150424
  Receipt Date: 20150424
  Transmission Date: 20150821
  Serious: Yes (Other)
  Sender: FDA-Public Use
  Company Number: DE-ABBVIE-15P-062-1378210-00

PATIENT
  Age: 76 Year
  Sex: Male
  Weight: 80 kg

DRUGS (2)
  1. EXVIERA [Suspect]
     Active Substance: DASABUVIR
     Indication: HEPATITIS C VIRUS TEST POSITIVE
     Dosage: 1-0-1
     Route: 048
     Dates: start: 20150316
  2. VIEKIRAX [Suspect]
     Active Substance: OMBITASVIR\PARITAPREVIR\RITONAVIR
     Indication: HEPATITIS C VIRUS TEST POSITIVE
     Dosage: 12.5/75/50; 2-0-0
     Route: 048
     Dates: start: 20150316

REACTIONS (5)
  - Headache [Not Recovered/Not Resolved]
  - Vestibular disorder [Unknown]
  - Gait disturbance [Unknown]
  - Visual impairment [Not Recovered/Not Resolved]
  - Dizziness [Not Recovered/Not Resolved]

NARRATIVE: CASE EVENT DATE: 20150413
